FAERS Safety Report 7292977-4 (Version None)
Quarter: 2011Q1

REPORT INFORMATION
  Report Type: 
  Country: None (occurrence: None)
  Receive Date: 20110204
  Receipt Date: 20110119
  Transmission Date: 20110831
  Serious: Yes (Hospitalization)
  Sender: FDA-Public Use
  Company Number: THQ2011A00274

PATIENT
  Age: 40 Year
  Sex: Female

DRUGS (4)
  1. LANTUS [Concomitant]
  2. HUMULIN R [Suspect]
     Indication: DIABETES MELLITUS
     Dosage: (20 UT, THREE TO FOUR TIMES DAILY)
     Dates: end: 20070101
  3. HUMULIN R [Suspect]
     Indication: DIABETES MELLITUS
     Dosage: (20 UT, THREE TO FOUR TIMES DAILY)
     Dates: start: 20070101
  4. ACTOS [Suspect]
     Dates: start: 20100101

REACTIONS (21)
  - INTRACARDIAC THROMBUS [None]
  - OPTIC NERVE OPERATION [None]
  - HYPOTENSION [None]
  - VEIN DISORDER [None]
  - DIABETIC NEUROPATHY [None]
  - ADVERSE DRUG REACTION [None]
  - SLEEP APNOEA SYNDROME [None]
  - OEDEMA PERIPHERAL [None]
  - SINUS TACHYCARDIA [None]
  - PULMONARY OEDEMA [None]
  - CONVULSION [None]
  - CATARACT [None]
  - DIABETES MELLITUS INADEQUATE CONTROL [None]
  - BLOOD GLUCOSE INCREASED [None]
  - OEDEMA [None]
  - MIGRAINE [None]
  - VISION BLURRED [None]
  - DIPLOPIA [None]
  - CHEST PAIN [None]
  - ASTHMA [None]
  - DRUG DISPENSING ERROR [None]
